FAERS Safety Report 8500687-8 (Version None)
Quarter: 2012Q3

REPORT INFORMATION
  Report Type: 
  Country: None (occurrence: None)
  Receive Date: 20120710
  Receipt Date: 20120703
  Transmission Date: 20120928
  Serious: Yes (Hospitalization)
  Sender: FDA-Public Use
  Company Number: US-UCBSA-014609

PATIENT
  Age: 45 Year
  Sex: Female
  Weight: 57 kg

DRUGS (10)
  1. XANAX [Concomitant]
     Indication: INSOMNIA
     Dosage: QHS
     Dates: start: 20090812, end: 20090813
  2. LACOSAMIDE [Suspect]
     Indication: EPILEPSY
     Route: 048
     Dates: start: 20090225, end: 20100623
  3. CELEXA [Concomitant]
     Indication: DEPRESSION
     Dates: start: 20080421
  4. VICODIN [Concomitant]
     Dosage: 5/500 MG Q12
     Route: 048
     Dates: start: 20100507, end: 20100515
  5. HYDROCORTISONE [Concomitant]
     Indication: DERMATITIS
     Dates: start: 20090814
  6. ANCEF [Concomitant]
     Indication: ANKLE OPERATION
     Route: 042
     Dates: start: 20100524, end: 20100524
  7. MARCAINE HYDROCHLORIDE W/ EPINEPHRINE [Concomitant]
     Indication: ANKLE OPERATION
     Route: 042
     Dates: start: 20100524, end: 20100524
  8. FENTANYL [Concomitant]
     Indication: ANKLE OPERATION
     Route: 042
     Dates: start: 20100524, end: 20100524
  9. VICODIN [Concomitant]
     Indication: ANALGESIC THERAPY
     Dosage: 5/500 MG QHS
     Route: 048
     Dates: start: 20100516
  10. XANAX [Concomitant]
     Dosage: QHS
     Dates: start: 20090824

REACTIONS (2)
  - POSTICTAL STATE [None]
  - CONVULSION [None]
